FAERS Safety Report 17372237 (Version 2)
Quarter: 2020Q3

REPORT INFORMATION
  Report Type: Spontaneous
  Country: LB (occurrence: LB)
  Receive Date: 20200205
  Receipt Date: 20200709
  Transmission Date: 20201102
  Serious: Yes (Death, Life-Threatening, Hospitalization, Other)
  Sender: FDA-Public Use
  Company Number: LB-BRISTOL-MYERS SQUIBB COMPANY-BMS-2019-026217

PATIENT
  Age: 53 Year
  Sex: Male

DRUGS (1)
  1. OPDIVO [Suspect]
     Active Substance: NIVOLUMAB
     Indication: LUNG NEOPLASM MALIGNANT
     Dosage: 240 MILLIGRAM, Q2WK EVERY 15 DAYS
     Route: 042

REACTIONS (5)
  - Metastases to neck [Unknown]
  - Limb injury [Unknown]
  - Choking [Fatal]
  - General physical health deterioration [Fatal]
  - Obstructive airways disorder [Fatal]

NARRATIVE: CASE EVENT DATE: 20200127
